FAERS Safety Report 7591630-7 (Version None)
Quarter: 2011Q3

REPORT INFORMATION
  Report Type: 
  Country: None (occurrence: None)
  Receive Date: 20110706
  Receipt Date: 20110614
  Transmission Date: 20111222
  Serious: Yes (Hospitalization, Other)
  Sender: FDA-Public Use
  Company Number: US-BAYER-201021018NA

PATIENT
  Sex: Female
  Weight: 86 kg

DRUGS (8)
  1. FISH OIL [Concomitant]
     Dosage: 1000 MG, QD
     Route: 048
  2. MOTRIN [Concomitant]
     Indication: PAIN
     Dosage: 200 MG, BID AS NEEDED
     Route: 048
  3. VITAMIN D [Concomitant]
     Dosage: DAILY DOSE 1000 IU
     Route: 048
  4. LIPITOR [Concomitant]
     Indication: HYPERLIPIDAEMIA
     Dosage: 20 MG, UNK
     Route: 048
     Dates: start: 20070111
  5. TYLENOL 1 [Concomitant]
     Indication: PAIN
     Dosage: 500 MG, BID AS NEEDED
     Route: 048
  6. YAZ [Suspect]
     Indication: PREMENSTRUAL SYNDROME
     Dosage: UNK
     Route: 048
     Dates: start: 20070405, end: 20071015
  7. YASMIN [Suspect]
     Indication: PREMENSTRUAL SYNDROME
     Dosage: UNK
     Route: 048
     Dates: end: 20071015
  8. DROSPIRENONE AND ETHINYL ESTRADIOL [Suspect]
     Indication: PREMENSTRUAL SYNDROME
     Dosage: UNK
     Dates: end: 20071015

REACTIONS (5)
  - PAIN [None]
  - ANXIETY [None]
  - CHOLECYSTITIS CHRONIC [None]
  - CHOLELITHIASIS [None]
  - GALLBLADDER DISORDER [None]
